FAERS Safety Report 19468464 (Version 1)
Quarter: 2021Q2

REPORT INFORMATION
  Report Type: Spontaneous
  Country: DE (occurrence: DE)
  Receive Date: 20210628
  Receipt Date: 20210628
  Transmission Date: 20210717
  Serious: Yes (Other)
  Sender: FDA-Public Use
  Company Number: DE-AMGEN-DEUSP2021095837

PATIENT
  Age: 48 Year
  Sex: Male

DRUGS (9)
  1. PEMBROLIZUMAB. [Suspect]
     Active Substance: PEMBROLIZUMAB
     Indication: NON-SMALL CELL LUNG CANCER
     Dosage: 200 MILLIGRAM, Q3WK
     Route: 065
     Dates: start: 201810, end: 201812
  2. TAXOTERE [Suspect]
     Active Substance: DOCETAXEL
     Indication: NON-SMALL CELL LUNG CANCER
     Dosage: 75MG/M2 D1, Q22
     Route: 065
     Dates: start: 201907
  3. PEMBROLIZUMAB. [Suspect]
     Active Substance: PEMBROLIZUMAB
     Dosage: 200 MILLIGRAM, Q3WK
     Route: 065
     Dates: start: 201901, end: 201902
  4. CARBOPLATIN. [Suspect]
     Active Substance: CARBOPLATIN
     Indication: NON-SMALL CELL LUNG CANCER
     Dosage: AUC 5 DAY 1 REPETITION DAY 22
     Route: 065
     Dates: start: 201810, end: 201812
  5. PEMETREXED. [Suspect]
     Active Substance: PEMETREXED
     Indication: NON-SMALL CELL LUNG CANCER
     Dosage: 500 MILLIGRAM/SQ. METER, Q3WK
     Route: 065
     Dates: start: 201810, end: 201812
  6. XGEVA [Suspect]
     Active Substance: DENOSUMAB
     Indication: NON-SMALL CELL LUNG CANCER
     Dosage: 120 MILLIGRAM, Q4WK
     Route: 065
     Dates: start: 201810, end: 201812
  7. XGEVA [Suspect]
     Active Substance: DENOSUMAB
     Dosage: UNK UNK, Q4WK
     Route: 065
     Dates: start: 201901, end: 201902
  8. PEMETREXED. [Suspect]
     Active Substance: PEMETREXED
     Dosage: 500 MILLIGRAM/SQ. METER, Q3WK
     Route: 065
     Dates: start: 201901, end: 201902
  9. DOCETAXEL. [Suspect]
     Active Substance: DOCETAXEL
     Indication: NON-SMALL CELL LUNG CANCER
     Dosage: 75 MILLIGRAM/SQ. METER, Q3WK
     Route: 065
     Dates: start: 201907

REACTIONS (4)
  - Neutropenia [Unknown]
  - Nephritis [Unknown]
  - Influenza [Unknown]
  - Metastases to central nervous system [Unknown]

NARRATIVE: CASE EVENT DATE: 2019
